FAERS Safety Report 10117435 (Version 1)
Quarter: 2014Q2

REPORT INFORMATION
  Report Type: Spontaneous
  Country: US (occurrence: US)
  Receive Date: 20140425
  Receipt Date: 20140425
  Transmission Date: 20141212
  Serious: Yes (Other)
  Sender: FDA-Public Use
  Company Number: US-BMSGILMSD-2013-0070029

PATIENT
  Age: 39 Year
  Sex: Female

DRUGS (9)
  1. ATRIPLA [Suspect]
     Indication: HIV INFECTION
     Dosage: UNK
     Route: 065
     Dates: start: 200906, end: 200906
  2. EPZICOM [Suspect]
     Indication: HIV INFECTION
     Dosage: UNK
     Route: 065
     Dates: start: 200605, end: 200906
  3. EPZICOM [Suspect]
     Dosage: UNK
     Route: 065
     Dates: start: 200906
  4. REYATAZ [Suspect]
     Indication: HIV INFECTION
     Dosage: UNK
     Route: 065
     Dates: start: 200605, end: 200906
  5. REYATAZ [Suspect]
     Dosage: UNK
     Route: 065
     Dates: start: 200906
  6. RITONAVIR [Suspect]
     Indication: HIV INFECTION
     Dosage: UNK
     Route: 065
     Dates: start: 200605, end: 200906
  7. RITONAVIR [Suspect]
     Dosage: UNK
     Route: 065
     Dates: start: 200906
  8. RESTORIL                           /00393701/ [Concomitant]
     Dosage: UNK
     Dates: start: 200912
  9. HYDROXYZINE [Concomitant]
     Dosage: UNK
     Dates: start: 200709

REACTIONS (3)
  - Renal failure [Unknown]
  - Nervous system disorder [Unknown]
  - Drug intolerance [Unknown]
